FAERS Safety Report 4309921-1 (Version None)
Quarter: 2004Q1

REPORT INFORMATION
  Report Type: 
  Country: None (occurrence: None)
  Receive Date: 20040303
  Receipt Date: 20040128
  Transmission Date: 20041129
  Serious: No
  Sender: FDA-Public Use
  Company Number: US-BRISTOL-MYERS SQUIBB COMPANY-12490207

PATIENT
  Age: 50 Year
  Sex: Male
  Weight: 88 kg

DRUGS (6)
  1. ABILIFY [Suspect]
     Indication: BIPOLAR DISORDER
     Dosage: INCREASED TO 40 MG/DAY ON 12-JAN-2004.
     Route: 048
     Dates: start: 20031029
  2. EFFEXOR XR [Concomitant]
  3. ZETIA [Concomitant]
  4. TESTOSTERONE [Concomitant]
  5. OXYCONTIN [Concomitant]
  6. OXYFAST [Concomitant]

REACTIONS (6)
  - ANGER [None]
  - EMOTIONAL DISORDER [None]
  - PARANOIA [None]
  - PRESCRIBED OVERDOSE [None]
  - SELF ESTEEM DECREASED [None]
  - SOCIAL AVOIDANT BEHAVIOUR [None]
